FAERS Safety Report 4558014-7 (Version None)
Quarter: 2005Q1

REPORT INFORMATION
  Report Type: 
  Country: None (occurrence: None)
  Receive Date: 20050121
  Receipt Date: 20040518
  Transmission Date: 20050727
  Serious: No
  Sender: FDA-Public Use
  Company Number: US-BRISTOL-MYERS SQUIBB COMPANY-12590642

PATIENT
  Sex: Female

DRUGS (3)
  1. SERZONE [Suspect]
     Indication: FIBROMYALGIA
     Dosage: DOSE RANGE: 50-100 MG TAKEN AT NIGHT.
     Route: 048
  2. SERZONE [Suspect]
     Indication: SLEEP DISORDER
     Dosage: DOSE RANGE: 50-100 MG TAKEN AT NIGHT.
     Route: 048
  3. HORMONE THERAPY [Concomitant]

REACTIONS (8)
  - ABDOMINAL DISTENSION [None]
  - ABDOMINAL TENDERNESS [None]
  - DISORIENTATION [None]
  - DYSPNOEA [None]
  - FAT TISSUE INCREASED [None]
  - FATIGUE [None]
  - HEART RATE INCREASED [None]
  - SINUS CONGESTION [None]
